FAERS Safety Report 6189901-4 (Version None)
Quarter: 2009Q2

REPORT INFORMATION
  Report Type: 
  Country: None (occurrence: None)
  Receive Date: 20090512
  Receipt Date: 20090512
  Transmission Date: 20091009
  Serious: Yes (Death)
  Sender: FDA-Public Use
  Company Number: None

PATIENT
  Age: 18 Year
  Sex: Male
  Weight: 76.2043 kg

DRUGS (2)
  1. CLARAVIS [Suspect]
     Indication: ACNE
     Dosage: 20MG TWICE DAILY PO
     Route: 048
     Dates: start: 20081002, end: 20090405
  2. LISINOPRIL [Concomitant]

REACTIONS (1)
  - COMPLETED SUICIDE [None]
